FAERS Safety Report 18855847 (Version 1)
Quarter: 2021Q1

REPORT INFORMATION
  Report Type: Spontaneous
  Country: JP (occurrence: JP)
  Receive Date: 20210206
  Receipt Date: 20210206
  Transmission Date: 20210420
  Serious: Yes (Hospitalization, Other)
  Sender: FDA-Public Use
  Company Number: JP-MACLEODS PHARMACEUTICALS US LTD-MAC2021029996

PATIENT

DRUGS (7)
  1. METFORMIN HYDROCHLORIDE. [Concomitant]
     Active Substance: METFORMIN HYDROCHLORIDE
     Indication: TYPE 2 DIABETES MELLITUS
     Dosage: 250 MILLIGRAM, QD
     Route: 048
  2. AROTINOLOL [Concomitant]
     Active Substance: AROTINOLOL
     Indication: HYPERTENSION
     Dosage: 10 MILLIGRAM, QD
     Route: 065
  3. IRBESARTAN. [Concomitant]
     Active Substance: IRBESARTAN
     Indication: HYPERTENSION
     Dosage: 200 MILLIGRAM, QD
     Route: 065
  4. NIFEDIPINE. [Suspect]
     Active Substance: NIFEDIPINE
     Indication: HYPERTENSION
     Dosage: 40 MILLIGRAM, QD
     Route: 065
  5. GLIMEPIRIDE. [Concomitant]
     Active Substance: GLIMEPIRIDE
     Indication: TYPE 2 DIABETES MELLITUS
     Dosage: 500 MILLIGRAM, QD
     Route: 048
  6. AMLODIPINE 10 MG [Suspect]
     Active Substance: AMLODIPINE BESYLATE
     Indication: HYPERTENSION
     Dosage: 10 MILLIGRAM, QD
     Route: 065
  7. VILDAGLIPTIN [Concomitant]
     Active Substance: VILDAGLIPTIN
     Indication: TYPE 2 DIABETES MELLITUS
     Dosage: 50 MILLIGRAM, QD
     Route: 048

REACTIONS (9)
  - Gingival hypertrophy [Recovered/Resolved]
  - Dental caries [Recovered/Resolved]
  - Periodontitis [Recovered/Resolved]
  - Tooth fracture [Recovered/Resolved]
  - Oral infection [Recovered/Resolved]
  - Bone deformity [Recovering/Resolving]
  - Gingival bleeding [Recovered/Resolved]
  - Tooth deposit [Recovered/Resolved]
  - Bacterial infection [Recovered/Resolved]
